FAERS Safety Report 16634547 (Version 1)
Quarter: 2019Q3

REPORT INFORMATION
  Report Type: Spontaneous
  Country: JP (occurrence: JP)
  Receive Date: 20190726
  Receipt Date: 20190726
  Transmission Date: 20191004
  Serious: Yes (Other)
  Sender: FDA-Public Use
  Company Number: JP-AMGEN-JPNSP2019118157

PATIENT
  Age: 90 Year
  Sex: Female

DRUGS (1)
  1. PRALIA [Suspect]
     Active Substance: DENOSUMAB
     Indication: PRODUCT USED FOR UNKNOWN INDICATION
     Dosage: UNK, Q6MO
     Route: 065
     Dates: start: 20190531

REACTIONS (9)
  - Jaw disorder [Unknown]
  - Thinking abnormal [Unknown]
  - Dizziness [Unknown]
  - Tremor [Unknown]
  - Muscle spasms [Unknown]
  - Arthralgia [Unknown]
  - Asthenia [Unknown]
  - Loose tooth [Unknown]
  - Suicidal ideation [Unknown]
